FAERS Safety Report 25238984 (Version 1)
Quarter: 2025Q2

REPORT INFORMATION
  Report Type: Spontaneous
  Country: CN (occurrence: CN)
  Receive Date: 20250425
  Receipt Date: 20250425
  Transmission Date: 20250716
  Serious: Yes (Other)
  Sender: ALEXION PHARMACEUTICALS
  Company Number: CN-ASTRAZENECA-202504GLO019696CN

PATIENT
  Age: 79 Year

DRUGS (5)
  1. OSIMERTINIB [Suspect]
     Active Substance: OSIMERTINIB
     Indication: Lung adenocarcinoma stage I
     Route: 065
  2. GEFITINIB [Suspect]
     Active Substance: GEFITINIB
     Indication: Lung adenocarcinoma stage I
     Dosage: 250 MILLIGRAM, QD
     Route: 065
  3. ICOTINIB [Concomitant]
     Active Substance: ICOTINIB
     Indication: Lung adenocarcinoma stage I
     Route: 065
  4. BEVACIZUMAB [Concomitant]
     Active Substance: BEVACIZUMAB
     Indication: Lung adenocarcinoma stage I
     Route: 065
  5. SAVOLITINIB [Concomitant]
     Active Substance: SAVOLITINIB
     Indication: Lung adenocarcinoma stage I
     Dosage: 400 MILLIGRAM, QD
     Route: 065

REACTIONS (5)
  - Drug intolerance [Unknown]
  - Malignant neoplasm progression [Unknown]
  - Metastases to lung [Unknown]
  - Gene mutation [Unknown]
  - Drug resistance [Unknown]
